FAERS Safety Report 8544202-1 (Version None)
Quarter: 2012Q3

REPORT INFORMATION
  Report Type: 
  Country: None (occurrence: None)
  Receive Date: 20120727
  Receipt Date: 20120725
  Transmission Date: 20120928
  Serious: Yes (Hospitalization)
  Sender: FDA-Public Use
  Company Number: PHEH2011US009429

PATIENT
  Sex: Male

DRUGS (4)
  1. HYPERSAL [Concomitant]
  2. PULMOZYME [Concomitant]
  3. TOBI [Suspect]
     Indication: CYSTIC FIBROSIS
     Dosage: 300 MG, BID
  4. ALBUTEROL [Concomitant]

REACTIONS (8)
  - THROMBOSIS [None]
  - COUGH [None]
  - FEELING ABNORMAL [None]
  - CHILLS [None]
  - PNEUMOTHORAX [None]
  - FATIGUE [None]
  - INFLUENZA [None]
  - PYREXIA [None]
